FAERS Safety Report 5703067-3 (Version None)
Quarter: 2008Q2

REPORT INFORMATION
  Report Type: 
  Country: None (occurrence: None)
  Receive Date: 20080411
  Receipt Date: 20080403
  Transmission Date: 20081010
  Serious: Yes (Life-Threatening, Hospitalization)
  Sender: FDA-Public Use
  Company Number: US-ABBOTT-08P-163-0445222-00

PATIENT
  Sex: Male
  Weight: 140.9 kg

DRUGS (6)
  1. HUMIRA [Suspect]
     Indication: PSORIATIC ARTHROPATHY
     Route: 058
     Dates: start: 20080218, end: 20080224
  2. LOTREL [Concomitant]
     Indication: HYPERTENSION
     Dosage: 124/64
     Route: 048
     Dates: start: 20050101
  3. PREGABALIN [Concomitant]
     Indication: BACK PAIN
     Dates: start: 20080401
  4. DOXYZOSIN [Concomitant]
     Indication: BENIGN PROSTATIC HYPERPLASIA
     Route: 048
     Dates: start: 19980101
  5. FINASTERIDE [Concomitant]
     Indication: BENIGN PROSTATIC HYPERPLASIA
     Route: 048
     Dates: start: 19980101
  6. ACETYLSALICYLIC ACID SRT [Concomitant]
     Indication: ANTICOAGULANT THERAPY
     Route: 048

REACTIONS (8)
  - CONJUNCTIVITIS INFECTIVE [None]
  - COUGH [None]
  - HYPOXIA [None]
  - LACRIMATION INCREASED [None]
  - NASAL CONGESTION [None]
  - PNEUMONIA [None]
  - UPPER RESPIRATORY TRACT INFECTION [None]
  - VISION BLURRED [None]
